FAERS Safety Report 17334401 (Version 3)
Quarter: 2020Q1

REPORT INFORMATION
  Report Type: Report from Study
  Country: None (occurrence: PR)
  Receive Date: 20200128
  Receipt Date: 20200217
  Transmission Date: 20200409
  Serious: Yes (Hospitalization, Other)
  Sender: FDA-Public Use
  Company Number: PR-ABBVIE-20K-131-3252688-00

PATIENT
  Age: 78 Year
  Sex: Female

DRUGS (2)
  1. DUOPA [Suspect]
     Active Substance: CARBIDOPA\LEVODOPA
     Route: 050
     Dates: start: 20200118
  2. DUOPA [Suspect]
     Active Substance: CARBIDOPA\LEVODOPA
     Indication: PARKINSON^S DISEASE
     Route: 050
     Dates: start: 20191205

REACTIONS (8)
  - Dyspnoea [Recovering/Resolving]
  - Hypotension [Unknown]
  - Muscle rigidity [Not Recovered/Not Resolved]
  - Unintentional medical device removal [Recovered/Resolved]
  - Respiratory distress [Not Recovered/Not Resolved]
  - Anxiety [Unknown]
  - Syncope [Recovering/Resolving]
  - Hypertension [Recovering/Resolving]

NARRATIVE: CASE EVENT DATE: 2019
